FAERS Safety Report 7436047-0 (Version None)
Quarter: 2011Q2

REPORT INFORMATION
  Report Type: 
  Country: None (occurrence: None)
  Receive Date: 20110425
  Receipt Date: 20110412
  Transmission Date: 20111010
  Serious: Yes (Hospitalization, Other)
  Sender: FDA-Public Use
  Company Number: JP-AMGEN-JPNCT2010003781

PATIENT
  Age: 66 Year
  Sex: Male
  Weight: 86 kg

DRUGS (9)
  1. SERETIDE [Concomitant]
     Route: 055
  2. ERBITUX [Suspect]
     Indication: COLORECTAL CANCER
     Route: 041
     Dates: start: 20100301, end: 20100601
  3. TOPSYM [Concomitant]
     Route: 062
  4. ADALAT [Concomitant]
     Route: 048
  5. PANITUMUMAB [Suspect]
     Indication: COLORECTAL CANCER
     Dosage: 4 MG/KG, Q2WK
     Route: 041
     Dates: start: 20100712, end: 20100921
  6. RINDERON-VG [Concomitant]
     Route: 062
  7. ADOAIR [Concomitant]
     Route: 055
  8. ONON [Concomitant]
     Route: 048
  9. MUCOSOLVAN L [Concomitant]
     Route: 048

REACTIONS (2)
  - DERMATITIS ACNEIFORM [None]
  - INTESTINAL OBSTRUCTION [None]
